FAERS Safety Report 13012061 (Version 1)
Quarter: 2016Q4

REPORT INFORMATION
  Report Type: Report from Study
  Country: None (occurrence: US)
  Receive Date: 20161209
  Receipt Date: 20161209
  Transmission Date: 20170207
  Serious: Yes (Other)
  Sender: FDA-Public Use
  Company Number: US-ABBVIE-16K-163-1750525-00

PATIENT
  Age: 60 Year
  Sex: Male
  Weight: 104.42 kg

DRUGS (2)
  1. HUMIRA [Suspect]
     Active Substance: ADALIMUMAB
     Indication: RHEUMATOID ARTHRITIS
     Route: 058
     Dates: start: 20160101, end: 20161113
  2. PREDNISONE. [Concomitant]
     Active Substance: PREDNISONE
     Indication: PAIN

REACTIONS (9)
  - Dermatitis allergic [Unknown]
  - Exostosis [Unknown]
  - Rotator cuff syndrome [Recovering/Resolving]
  - Pain in extremity [Not Recovered/Not Resolved]
  - Drug ineffective [Not Recovered/Not Resolved]
  - Food allergy [Unknown]
  - Allergic oedema [Unknown]
  - Allergic respiratory symptom [Unknown]
  - Joint swelling [Unknown]

NARRATIVE: CASE EVENT DATE: 2016
